FAERS Safety Report 10546815 (Version 1)
Quarter: 2014Q4

REPORT INFORMATION
  Report Type: Report from Study
  Country: US (occurrence: US)
  Receive Date: 20141027
  Receipt Date: 20141027
  Transmission Date: 20150529
  Serious: No
  Sender: FDA-Public Use
  Company Number: US-ABBVIE-14P-163-1293571-00

PATIENT
  Age: 23 Year

DRUGS (1)
  1. LUPRON DEPOT [Suspect]
     Active Substance: LEUPROLIDE ACETATE
     Indication: ENDOMETRIOSIS
     Route: 065
     Dates: start: 20140806

REACTIONS (3)
  - Hot flush [Recovering/Resolving]
  - Drug dose omission [Not Recovered/Not Resolved]
  - Adnexa uteri pain [Recovering/Resolving]

NARRATIVE: CASE EVENT DATE: 20140820
